FAERS Safety Report 5076617-0 (Version None)
Quarter: 2006Q3

REPORT INFORMATION
  Report Type: 
  Country: None (occurrence: None)
  Receive Date: 20060810
  Receipt Date: 20060807
  Transmission Date: 20061208
  Serious: Yes (Other)
  Sender: FDA-Public Use
  Company Number: GB-BRISTOL-MYERS SQUIBB COMPANY-13467667

PATIENT
  Age: 76 Year
  Sex: Male

DRUGS (3)
  1. IRBESARTAN [Suspect]
  2. BENDROFLUMETHIAZIDE [Concomitant]
  3. PROPRANOLOL [Concomitant]

REACTIONS (1)
  - ERYTHEMA MULTIFORME [None]
